FAERS Safety Report 6074614-X (Version None)
Quarter: 2009Q1

REPORT INFORMATION
  Report Type: 
  Country: None (occurrence: None)
  Receive Date: 20090212
  Receipt Date: 20090205
  Transmission Date: 20090719
  Serious: Yes (Other)
  Sender: FDA-Public Use
  Company Number: US-ALLERGAN-0901466US

PATIENT
  Sex: Female
  Weight: 69.388 kg

DRUGS (7)
  1. ALPHAGAN [Suspect]
     Indication: GLAUCOMA
     Route: 047
  2. XALATAN [Suspect]
     Indication: GLAUCOMA
     Dosage: 1 GTT, QD
     Route: 047
  3. COSOPT [Suspect]
     Indication: GLAUCOMA
     Route: 047
  4. LORAZEPAM [Concomitant]
  5. CLONAZEPAM [Concomitant]
     Dosage: UNK, PRN
  6. MIRTAZAPINE [Concomitant]
     Dosage: UNK, QHS
  7. CITALOPRAM HYDROBROMIDE [Concomitant]

REACTIONS (4)
  - INTRAOCULAR PRESSURE FLUCTUATION [None]
  - INTRAOCULAR PRESSURE INCREASED [None]
  - LEUKAEMIA [None]
  - THYROID CANCER [None]
